FAERS Safety Report 9176038 (Version 1)
Quarter: 2013Q1

REPORT INFORMATION
  Report Type: Spontaneous
  Country: US (occurrence: US)
  Receive Date: 20130320
  Receipt Date: 20130320
  Transmission Date: 20140127
  Serious: No
  Sender: FDA-Public Use
  Company Number: US-009507513-1303USA008483

PATIENT
  Sex: Female

DRUGS (3)
  1. PEGINTRON [Suspect]
     Indication: HEPATITIS C
     Dosage: 150 MICROGRAM, ONCE A WEEK
     Dates: start: 201303
  2. RIBAPAK [Suspect]
     Dosage: UNK
  3. TELAPREVIR [Suspect]
     Dosage: UNK

REACTIONS (3)
  - Influenza like illness [Not Recovered/Not Resolved]
  - Product quality issue [Unknown]
  - Accidental exposure to product [Unknown]
